FAERS Safety Report 6808487-1 (Version None)
Quarter: 2010Q2

REPORT INFORMATION
  Report Type: 
  Country: None (occurrence: None)
  Receive Date: 20100629
  Receipt Date: 20090701
  Transmission Date: 20101027
  Serious: No
  Sender: FDA-Public Use
  Company Number: US-PFIZER INC-2009226943

PATIENT
  Sex: Female
  Weight: 86.2 kg

DRUGS (12)
  1. ARTHROTEC [Suspect]
     Indication: OEDEMA PERIPHERAL
     Dosage: 50 MG, 2X/DAY
     Dates: start: 20090101
  2. ARTHROTEC [Suspect]
     Indication: PAIN
  3. INDOMETHACIN [Suspect]
     Dosage: 50 MG, 3X/DAY
  4. MIRAPEX [Concomitant]
     Dosage: UNK
  5. TRAZODONE [Concomitant]
     Indication: SLEEP DISORDER
     Dosage: UNK
  6. FUROSEMIDE [Concomitant]
     Dosage: UNK
  7. POTASSIUM CHLORIDE [Concomitant]
     Dosage: UNK
  8. FISH OIL [Concomitant]
     Dosage: UNK
  9. VITAMIN C [Concomitant]
     Dosage: UNK
  10. IRON [Concomitant]
     Dosage: UNK
  11. ADVAIR DISKUS 100/50 [Concomitant]
     Indication: ASTHMA
     Dosage: UNK
  12. FEXOFENADINE [Concomitant]

REACTIONS (4)
  - AFFECT LABILITY [None]
  - HYPOAESTHESIA [None]
  - PAIN IN EXTREMITY [None]
  - SKIN DISCOLOURATION [None]
